FAERS Safety Report 13264684 (Version 1)
Quarter: 2017Q1

REPORT INFORMATION
  Report Type: Spontaneous
  Country: US (occurrence: US)
  Receive Date: 20170223
  Receipt Date: 20170223
  Transmission Date: 20170428
  Serious: Yes (Other)
  Sender: FDA-Public Use
  Company Number: None

PATIENT
  Age: 53 Year
  Sex: Female
  Weight: 108 kg

DRUGS (14)
  1. FLONASE [Concomitant]
     Active Substance: FLUTICASONE PROPIONATE
  2. METOPROLOL. [Concomitant]
     Active Substance: METOPROLOL
  3. MELATONIN [Concomitant]
     Active Substance: MELATONIN
  4. GABAPENTIN. [Concomitant]
     Active Substance: GABAPENTIN
  5. ELIQUIS [Concomitant]
     Active Substance: APIXABAN
  6. PREDNISONE. [Concomitant]
     Active Substance: PREDNISONE
  7. BISOPROLOL [Concomitant]
     Active Substance: BISOPROLOL
  8. FISH OIL [Concomitant]
     Active Substance: FISH OIL
  9. METHOTREXATE. [Concomitant]
     Active Substance: METHOTREXATE
  10. MOBIC [Concomitant]
     Active Substance: MELOXICAM
  11. HYDROCHLOROTHIAZIDE. [Concomitant]
     Active Substance: HYDROCHLOROTHIAZIDE
  12. ORENCIA [Suspect]
     Active Substance: ABATACEPT
     Indication: RHEUMATOID ARTHRITIS
     Dosage: ?          OTHER FREQUENCY:ONCE WEEKLY;?
     Route: 058
     Dates: start: 20161209, end: 20170223
  13. CALCIUM [Concomitant]
     Active Substance: CALCIUM
  14. SERTRALINE [Concomitant]
     Active Substance: SERTRALINE HYDROCHLORIDE

REACTIONS (1)
  - Dyspnoea [None]

NARRATIVE: CASE EVENT DATE: 20170223
